FAERS Safety Report 7645361-5 (Version None)
Quarter: 2011Q3

REPORT INFORMATION
  Report Type: 
  Country: None (occurrence: None)
  Receive Date: 20110729
  Receipt Date: 20110721
  Transmission Date: 20111222
  Serious: Yes (Hospitalization, Other)
  Sender: FDA-Public Use
  Company Number: US-BAYER-2010-007374

PATIENT
  Age: 18 Year
  Sex: Female
  Weight: 79.365 kg

DRUGS (8)
  1. YAZ [Suspect]
     Indication: CONTRACEPTION
     Dosage: UNK
     Dates: start: 20060101, end: 20100101
  2. AMOXIL [Concomitant]
     Indication: PHARYNGITIS
     Dosage: 500 MG, TID
     Route: 048
     Dates: start: 20071012
  3. NASONEX [Concomitant]
  4. HYDROCODONE BITARTRATE AND ACETAMINOPHEN [Concomitant]
     Dosage: UNK
     Route: 048
     Dates: start: 20071125
  5. ADVIL LIQUI-GELS [Concomitant]
     Route: 048
  6. ALLEGRA-D [FEXOFENADINE HYDROCHLORIDE,PSEUDOEPHEDRINE] [Concomitant]
     Dosage: UNK UNK, PRN
  7. PROMETHAZINE [Concomitant]
     Dosage: 25 MG, UNK
     Route: 048
     Dates: start: 20071225
  8. AMOXIL [Concomitant]
     Indication: SINUSITIS

REACTIONS (6)
  - GALLBLADDER PAIN [None]
  - CHOLELITHIASIS [None]
  - ABDOMINAL PAIN UPPER [None]
  - INJURY [None]
  - CHOLECYSTITIS CHRONIC [None]
  - PAIN [None]
